FAERS Safety Report 7397148-9 (Version None)
Quarter: 2011Q2

REPORT INFORMATION
  Report Type: 
  Country: None (occurrence: None)
  Receive Date: 20110406
  Receipt Date: 20110331
  Transmission Date: 20111010
  Serious: Yes (Hospitalization)
  Sender: FDA-Public Use
  Company Number: B0706773A

PATIENT
  Age: 53 Year
  Sex: Female
  Weight: 64 kg

DRUGS (6)
  1. AVAPRO [Concomitant]
     Dosage: 100MG PER DAY
     Route: 048
  2. REVOLADE [Suspect]
     Indication: IDIOPATHIC THROMBOCYTOPENIC PURPURA
     Route: 048
     Dates: start: 20110207, end: 20110315
  3. ALFAROL [Concomitant]
     Dosage: 1MCG PER DAY
     Route: 048
  4. MUCOSTA [Concomitant]
     Dosage: 300MG PER DAY
     Route: 048
  5. SLOW-K [Concomitant]
     Dosage: 600MG PER DAY
     Route: 048
  6. BAKTAR [Concomitant]
     Route: 048

REACTIONS (4)
  - MALAISE [None]
  - ASPARTATE AMINOTRANSFERASE INCREASED [None]
  - ALANINE AMINOTRANSFERASE INCREASED [None]
  - HEPATIC FUNCTION ABNORMAL [None]
